FAERS Safety Report 13199279 (Version 2)
Quarter: 2017Q1

REPORT INFORMATION
  Report Type: Spontaneous
  Country: US (occurrence: US)
  Receive Date: 20170208
  Receipt Date: 20170222
  Transmission Date: 20170428
  Serious: Yes (Hospitalization, Other)
  Sender: FDA-Public Use
  Company Number: US-JAZZ-2017-US-001591

PATIENT
  Sex: Female

DRUGS (1)
  1. XYREM [Suspect]
     Active Substance: SODIUM OXYBATE
     Indication: NARCOLEPSY

REACTIONS (13)
  - Panic attack [Unknown]
  - Fatigue [Unknown]
  - Vomiting [Unknown]
  - Hospitalisation [Unknown]
  - Dysgeusia [Unknown]
  - Feeling abnormal [Unknown]
  - Nausea [Unknown]
  - Weight decreased [Unknown]
  - Binge eating [Unknown]
  - Anxiety [Unknown]
  - Decreased appetite [Unknown]
  - Acne [Recovered/Resolved]
  - Somnolence [Unknown]
